FAERS Safety Report 5972311-X (Version None)
Quarter: 2008Q4

REPORT INFORMATION
  Report Type: 
  Country: None (occurrence: None)
  Receive Date: 20081201
  Receipt Date: 20080715
  Transmission Date: 20090506
  Serious: Yes (Life-Threatening, Other)
  Sender: FDA-Public Use
  Company Number: US-TEVA-174847USA

PATIENT
  Sex: Male
  Weight: 74.91 kg

DRUGS (2)
  1. SALBUTAMOL SULFATE INHALATION, 0.09 MG [Suspect]
     Indication: ASTHMA
     Dosage: 2 PUFFS EVERY 4 HOURS
     Route: 048
     Dates: start: 20071120, end: 20080215
  2. SALBUTAMOL SULFATE INHALATION, 0.09 MG [Suspect]
     Indication: ASTHMA PROPHYLAXIS

REACTIONS (2)
  - DRUG INEFFECTIVE [None]
  - DYSPNOEA [None]
